FAERS Safety Report 5407437-2 (Version None)
Quarter: 2007Q3

REPORT INFORMATION
  Report Type: 
  Country: None (occurrence: None)
  Receive Date: 20070807
  Receipt Date: 20070613
  Transmission Date: 20080115
  Serious: Yes (Disabling, Other)
  Sender: FDA-Public Use
  Company Number: US-PURDUE-USA_2007_0028032

PATIENT
  Age: 33 Year
  Sex: Male
  Weight: 125 kg

DRUGS (3)
  1. OXYCONTIN [Suspect]
     Indication: RIB FRACTURE
     Dosage: 20 MG, SEE TEXT
     Dates: start: 19990425
  2. LORTAB [Concomitant]
     Dosage: 15 MG, DAILY
  3. XANAX [Concomitant]
     Dosage: 10 MG, DAILY

REACTIONS (4)
  - AGGRESSION [None]
  - DRUG DEPENDENCE [None]
  - EUPHORIC MOOD [None]
  - PAIN [None]
